FAERS Safety Report 24076757 (Version 2)
Quarter: 2024Q3

REPORT INFORMATION
  Report Type: Spontaneous
  Country: US (occurrence: US)
  Receive Date: 20240711
  Receipt Date: 20240723
  Transmission Date: 20241017
  Serious: Yes (Hospitalization)
  Sender: JOHNSON AND JOHNSON
  Company Number: US-JNJFOC-20240722398

PATIENT
  Age: 67 Year
  Sex: Female

DRUGS (4)
  1. SPRAVATO [Suspect]
     Active Substance: ESKETAMINE
     Indication: Major depression
     Dosage: ^84 MG, 1 TOTAL DOSE^
     Dates: start: 20240708, end: 20240708
  2. SPRAVATO [Suspect]
     Active Substance: ESKETAMINE
     Indication: Depression
  3. SPRAVATO [Suspect]
     Active Substance: ESKETAMINE
     Indication: Suicidal ideation
  4. PROVIGIL [Concomitant]
     Active Substance: MODAFINIL
     Indication: Product used for unknown indication

REACTIONS (5)
  - Nausea [Not Recovered/Not Resolved]
  - Anxiety [Recovered/Resolved]
  - Feeling abnormal [Unknown]
  - Lethargy [Unknown]
  - Off label use [Unknown]

NARRATIVE: CASE EVENT DATE: 20240708
